FAERS Safety Report 9651109 (Version 2)
Quarter: 2013Q4

REPORT INFORMATION
  Report Type: Spontaneous
  Country: US (occurrence: US)
  Receive Date: 20131029
  Receipt Date: 20131126
  Transmission Date: 20140711
  Serious: No
  Sender: FDA-Public Use
  Company Number: US-PFIZER INC-2013308827

PATIENT
  Age: 41 Year
  Sex: Female
  Weight: 90.25 kg

DRUGS (3)
  1. PRISTIQ [Suspect]
     Dosage: 50 MG, DAILY
     Dates: start: 20130822, end: 2013
  2. PRISTIQ [Suspect]
     Dosage: 100 MG, DAILY
     Dates: start: 2013
  3. BUSPAR [Concomitant]
     Indication: ANXIETY
     Dosage: 5 MG, DAILY

REACTIONS (1)
  - Drug ineffective [Unknown]
